FAERS Safety Report 15740902 (Version 1)
Quarter: 2018Q4

REPORT INFORMATION
  Report Type: Spontaneous
  Country: ES (occurrence: ES)
  Receive Date: 20181219
  Receipt Date: 20181219
  Transmission Date: 20190205
  Serious: Yes (Other)
  Sender: FDA-Public Use
  Company Number: ES-FRESENIUS KABI-FK201812915

PATIENT
  Age: 86 Year
  Sex: Male

DRUGS (3)
  1. CEFEPIME HYDROCHLORIDE. [Concomitant]
     Active Substance: CEFEPIME HYDROCHLORIDE
     Indication: INTERVERTEBRAL DISCITIS
     Route: 065
  2. DAPTOMYCIN (MANUFACTURER UNKNOWN) [Suspect]
     Active Substance: DAPTOMYCIN
     Indication: INTERVERTEBRAL DISCITIS
     Route: 065
  3. PREDNISONE ACETATE [Suspect]
     Active Substance: PREDNISONE ACETATE
     Indication: PRODUCT USED FOR UNKNOWN INDICATION
     Dosage: 45 MG
     Route: 065

REACTIONS (11)
  - Uraemic encephalopathy [Recovering/Resolving]
  - Haemorrhage [Recovering/Resolving]
  - Haemoptysis [Recovering/Resolving]
  - Anaemia [Recovering/Resolving]
  - Rhabdomyolysis [Recovering/Resolving]
  - Haematuria [Recovering/Resolving]
  - Skin lesion [Recovering/Resolving]
  - Oliguria [Recovering/Resolving]
  - Metabolic acidosis [Recovering/Resolving]
  - Choluria [Recovered/Resolved]
  - Acute kidney injury [Recovering/Resolving]
